FAERS Safety Report 22596621 (Version 1)
Quarter: 2023Q2

REPORT INFORMATION
  Report Type: Spontaneous
  Country: US (occurrence: US)
  Receive Date: 20230613
  Receipt Date: 20230613
  Transmission Date: 20230722
  Serious: No
  Sender: FDA-Public Use
  Company Number: US-BRISTOL-MYERS SQUIBB COMPANY-2023-083212

PATIENT
  Age: 69 Year
  Sex: Male

DRUGS (1)
  1. ORENCIA [Suspect]
     Active Substance: ABATACEPT
     Indication: Diverticulitis
     Route: 058
     Dates: start: 202208

REACTIONS (4)
  - Pain [Unknown]
  - Gait disturbance [Unknown]
  - Off label use [Unknown]
  - General physical health deterioration [Unknown]
